FAERS Safety Report 14747775 (Version 1)
Quarter: 2018Q2

REPORT INFORMATION
  Report Type: Spontaneous
  Country: US (occurrence: US)
  Receive Date: 20180411
  Receipt Date: 20180411
  Transmission Date: 20180711
  Serious: No
  Sender: FDA-Public Use
  Company Number: US-ENDO PHARMACEUTICALS INC-2017-005795

PATIENT
  Sex: Male

DRUGS (4)
  1. AVEED [Suspect]
     Active Substance: TESTOSTERONE UNDECANOATE
     Dosage: UNK, FOURTH INJECTION AT 12 WEEKS, UNKNOWN
     Route: 065
     Dates: start: 2017, end: 2017
  2. AVEED [Suspect]
     Active Substance: TESTOSTERONE UNDECANOATE
     Dosage: UNK, (THIRD INJECTION) CONTINUED DOSE AT TEN-WEEK INTERVALS, UNKNOWN
     Route: 065
     Dates: start: 2017
  3. AVEED [Suspect]
     Active Substance: TESTOSTERONE UNDECANOATE
     Indication: BLOOD TESTOSTERONE DECREASED
     Dosage: UNK, SECOND INJECTION AT THREE WEEKS, UNKNOWN
     Route: 065
     Dates: start: 2017
  4. AVEED [Suspect]
     Active Substance: TESTOSTERONE UNDECANOATE
     Dosage: UNK, FIRST INJECTION AT ZERO WEEKS, SINGLE
     Route: 065
     Dates: start: 2017

REACTIONS (2)
  - Blood testosterone decreased [Unknown]
  - Inappropriate schedule of drug administration [Recovered/Resolved]

NARRATIVE: CASE EVENT DATE: 2017
